FAERS Safety Report 19860626 (Version 5)
Quarter: 2023Q2

REPORT INFORMATION
  Report Type: Spontaneous
  Country: CA (occurrence: CA)
  Receive Date: 20210921
  Receipt Date: 20230424
  Transmission Date: 20230722
  Serious: Yes (Hospitalization, Other)
  Sender: FDA-Public Use
  Company Number: CA-CELLTRION INC.-2021CA010429

PATIENT

DRUGS (14)
  1. INFLECTRA [Suspect]
     Active Substance: INFLIXIMAB-DYYB
     Indication: Crohn^s disease
     Dosage: 5 MG/KG (5 MG/KG, Q 0, 2, 6 THEN EVERY 8 WEEKS)
     Route: 042
     Dates: start: 20210609, end: 20210916
  2. INFLECTRA [Suspect]
     Active Substance: INFLIXIMAB-DYYB
     Dosage: 5 MG/KG (5 MG/KG, Q 0, 2, 6 THEN EVERY 8 WEEKS)
     Route: 042
     Dates: start: 20210623
  3. INFLECTRA [Suspect]
     Active Substance: INFLIXIMAB-DYYB
     Dosage: 5 MG/KG (5 MG/KG, 0, 2, 6 THEN EVERY 8 WEEKS)
     Route: 042
     Dates: start: 20210623
  4. INFLECTRA [Suspect]
     Active Substance: INFLIXIMAB-DYYB
     Dosage: 5 MG/KG (5 MG/KG, 0, 2, 6 THEN EVERY 8 WEEKS)
     Route: 042
     Dates: start: 20210722, end: 20210722
  5. INFLECTRA [Suspect]
     Active Substance: INFLIXIMAB-DYYB
     Dosage: 5 MG/KG (5 MG/KG, 0, 2, 6 THEN EVERY 8 WEEKS)
     Route: 042
     Dates: start: 20210916
  6. INFLECTRA [Suspect]
     Active Substance: INFLIXIMAB-DYYB
     Dosage: 5 MG/KG (5 MG/KG, EVERY 6 WEEKS)
     Route: 042
     Dates: start: 20211027
  7. INFLECTRA [Suspect]
     Active Substance: INFLIXIMAB-DYYB
     Dosage: 500 MG (500 MG, EVERY 6 WEEKS)
     Route: 042
     Dates: start: 20220413
  8. INFLECTRA [Suspect]
     Active Substance: INFLIXIMAB-DYYB
     Dosage: 5 MG/KG (5 MG/KG, EVERY 7 WEEK, TO BE ROUNDED TO THE NEAREST HUNDRED)
     Route: 042
     Dates: start: 20220602
  9. INFLECTRA [Suspect]
     Active Substance: INFLIXIMAB-DYYB
     Dosage: 500 MG (500 MG,(SUPPOSE TO RECEIVE 5MG/KG) EVERY 6 WEEKS)
     Route: 042
     Dates: start: 20220907
  10. INFLECTRA [Suspect]
     Active Substance: INFLIXIMAB-DYYB
     Dosage: 5 MG/KG (5 MG/KG, EVERY 7 WEEK, TO BE ROUNDED TO THE NEAREST HUNDRED)
     Route: 042
     Dates: start: 20221214
  11. INFLECTRA [Suspect]
     Active Substance: INFLIXIMAB-DYYB
     Dosage: 500 MG (5 MG/KG ROUNDED UP TO THE NEAREST VIAL) EVERY 7 WEEKS
     Route: 042
     Dates: start: 20230201
  12. INFLECTRA [Suspect]
     Active Substance: INFLIXIMAB-DYYB
     Dosage: 500MG, AFTER 10 WEEKS (5 MG/KG ROUNDED UP TO THE NEAREST VIAL) EVERY 7 WEEKS
     Route: 042
     Dates: start: 20230414
  13. CIPROFLOXACIN [Concomitant]
     Active Substance: CIPROFLOXACIN
     Indication: Crohn^s disease
     Dosage: 500 MG, 2X/DAY
     Route: 065
     Dates: start: 20210514
  14. METRONIDAZOLE [Concomitant]
     Active Substance: METRONIDAZOLE
     Indication: Crohn^s disease
     Dosage: 500 MG, 3X/DAY (250MG 2 TABTID )X2 WEEKS
     Route: 065
     Dates: start: 20210514

REACTIONS (8)
  - Meningoencephalitis viral [Recovered/Resolved]
  - Weight increased [Not Recovered/Not Resolved]
  - Heart rate decreased [Unknown]
  - Blood pressure increased [Not Recovered/Not Resolved]
  - Off label use [Unknown]
  - Off label use [Unknown]
  - Intentional product use issue [Unknown]
  - Incorrect dose administered [Unknown]

NARRATIVE: CASE EVENT DATE: 20210601
